FAERS Safety Report 24134628 (Version 2)
Quarter: 2024Q3

REPORT INFORMATION
  Report Type: Spontaneous
  Country: DE (occurrence: DE)
  Receive Date: 20240725
  Receipt Date: 20240810
  Transmission Date: 20241016
  Serious: Yes (Other)
  Sender: ROCHE
  Company Number: DE-002147023-NVSC2024DE148104

PATIENT
  Sex: Male

DRUGS (2)
  1. XOLAIR [Suspect]
     Active Substance: OMALIZUMAB
     Indication: Asthma
     Dosage: UNK
     Route: 065
  2. XOLAIR [Suspect]
     Active Substance: OMALIZUMAB
     Indication: Bronchopulmonary aspergillosis allergic

REACTIONS (5)
  - Immunosuppression [Unknown]
  - Polyp [Unknown]
  - Chronic sinusitis [Unknown]
  - Hypersensitivity [Unknown]
  - Mycotic allergy [Unknown]
